FAERS Safety Report 24451688 (Version 2)
Quarter: 2024Q4

REPORT INFORMATION
  Report Type: Report from Study
  Country: US (occurrence: US)
  Receive Date: 20241017
  Receipt Date: 20241018
  Transmission Date: 20250114
  Serious: Yes (Other)
  Sender: UCB
  Company Number: US-UCBSA-2024051823

PATIENT
  Age: 28 Year
  Sex: Male
  Weight: 58.97 kg

DRUGS (1)
  1. FINTEPLA [Suspect]
     Active Substance: FENFLURAMINE
     Indication: Product used for unknown indication
     Dosage: 1.5 MILLILITER, 2X/DAY (BID)
     Route: 048
     Dates: start: 20240813

REACTIONS (1)
  - Pulmonary valve incompetence [Unknown]

NARRATIVE: CASE EVENT DATE: 20240919
